FAERS Safety Report 6119382-8 (Version None)
Quarter: 2009Q1

REPORT INFORMATION
  Report Type: 
  Country: None (occurrence: None)
  Receive Date: 20090316
  Receipt Date: 20090306
  Transmission Date: 20090719
  Serious: Yes (Hospitalization, Congenital Anomaly)
  Sender: FDA-Public Use
  Company Number: A0683121A

PATIENT
  Sex: Male
  Weight: 3.4 kg

DRUGS (7)
  1. PAXIL [Suspect]
     Indication: ANXIETY
     Dosage: 30MG PER DAY
     Dates: start: 19960701, end: 20001201
  2. TYLENOL [Concomitant]
  3. VITAMIN TAB [Concomitant]
  4. CLARITIN [Concomitant]
  5. PROMETHAZINE [Concomitant]
  6. ACETAMINOPHEN [Concomitant]
  7. XANAX [Concomitant]

REACTIONS (17)
  - AGGRESSION [None]
  - ARNOLD-CHIARI MALFORMATION [None]
  - ASTHENIA [None]
  - ATTENTION DEFICIT/HYPERACTIVITY DISORDER [None]
  - AUTISM [None]
  - CONGENITAL ANOMALY [None]
  - CONGENITAL MUSCULOSKELETAL ANOMALY [None]
  - DEVELOPMENTAL DELAY [None]
  - DISTURBANCE IN SOCIAL BEHAVIOUR [None]
  - DRUG EXPOSURE DURING PREGNANCY [None]
  - DYSPHAGIA [None]
  - DYSPRAXIA [None]
  - FINE MOTOR DELAY [None]
  - HYPOTONIA [None]
  - OPPOSITIONAL DEFIANT DISORDER [None]
  - SPEECH DISORDER DEVELOPMENTAL [None]
  - SPINAL FUSION SURGERY [None]
